FAERS Safety Report 6414766-2 (Version None)
Quarter: 2009Q4

REPORT INFORMATION
  Report Type: 
  Country: None (occurrence: None)
  Receive Date: 20091026
  Receipt Date: 20091026
  Transmission Date: 20100525
  Serious: Yes (Other)
  Sender: FDA-Public Use
  Company Number: None

PATIENT
  Age: 59 Year
  Sex: Female
  Weight: 61.2356 kg

DRUGS (1)
  1. BUPROPION HCL [Suspect]
     Indication: DEPRESSION
     Dosage: 1 TABLET ONCE A DAY PO
     Route: 048
     Dates: start: 20090528, end: 20090616

REACTIONS (3)
  - AGITATION [None]
  - HEARING IMPAIRED [None]
  - TINNITUS [None]
